FAERS Safety Report 9159457 (Version 2)
Quarter: 2013Q1

REPORT INFORMATION
  Report Type: Report from Study
  Country: CZ (occurrence: CZ)
  Receive Date: 20130313
  Receipt Date: 20130318
  Transmission Date: 20140127
  Serious: Yes (Other)
  Sender: FDA-Public Use
  Company Number: PHHY2013CZ024218

PATIENT
  Age: 73 Year
  Sex: Female

DRUGS (2)
  1. ACLASTA/ZOLEDRONATE [Suspect]
     Indication: OSTEOPOROSIS POSTMENOPAUSAL
     Dosage: UNK UKN, UNK
     Route: 042
  2. ACLASTA/ZOLEDRONATE [Suspect]
     Dosage: UNK UKN, UNK
     Route: 042

REACTIONS (2)
  - Osteitis deformans [Not Recovered/Not Resolved]
  - Bone lesion [Unknown]
